FAERS Safety Report 5102758-5 (Version None)
Quarter: 2006Q3

REPORT INFORMATION
  Report Type: 
  Country: None (occurrence: None)
  Receive Date: 20060907
  Receipt Date: 20060820
  Transmission Date: 20061208
  Serious: Yes (Hospitalization)
  Sender: FDA-Public Use
  Company Number: 228391

PATIENT
  Age: 69 Year
  Sex: Female
  Weight: 112 kg

DRUGS (3)
  1. HERCEPTIN [Suspect]
     Indication: DRUG USE FOR UNKNOWN INDICATION
     Dosage: SEE IMAGE
     Dates: start: 20060221
  2. HERCEPTIN [Suspect]
     Indication: DRUG USE FOR UNKNOWN INDICATION
     Dosage: SEE IMAGE
     Dates: start: 20060307
  3. TAXOL [Suspect]
     Indication: DRUG USE FOR UNKNOWN INDICATION
     Dosage: 160 MG, INTRAVENOUS
     Route: 042
     Dates: start: 20060221

REACTIONS (6)
  - BUNDLE BRANCH BLOCK LEFT [None]
  - CHEST PAIN [None]
  - FEELING ABNORMAL [None]
  - MALAISE [None]
  - MYOCARDIAL ISCHAEMIA [None]
  - RASH [None]
